FAERS Safety Report 10797049 (Version 3)
Quarter: 2015Q1

REPORT INFORMATION
  Report Type: Spontaneous
  Country: JP (occurrence: JP)
  Receive Date: 20150216
  Receipt Date: 20150311
  Transmission Date: 20150721
  Serious: Yes (Other)
  Sender: FDA-Public Use
  Company Number: JP-ELI_LILLY_AND_COMPANY-JP201502002893

PATIENT
  Age: 85 Year
  Sex: Female

DRUGS (8)
  1. URITOS [Concomitant]
     Active Substance: IMIDAFENACIN
     Route: 048
  2. NITRODERM [Concomitant]
     Active Substance: NITROGLYCERIN
     Route: 048
  3. AMLODIN [Concomitant]
     Active Substance: AMLODIPINE BESYLATE
  4. HYPEN                              /00613801/ [Concomitant]
     Active Substance: ETODOLAC
     Indication: PAIN
     Dosage: UNK
     Route: 048
     Dates: start: 20140122
  5. EDIROL [Concomitant]
     Active Substance: ELDECALCITOL
     Dosage: UNK
     Route: 048
  6. AVAPRO [Concomitant]
     Active Substance: IRBESARTAN
     Dosage: UNK
     Route: 048
  7. ACINON                             /00867001/ [Concomitant]
     Route: 048
  8. FORTEO [Suspect]
     Active Substance: TERIPARATIDE
     Indication: OSTEOPOROSIS
     Dosage: 20 UG, QD
     Route: 058
     Dates: start: 20150203, end: 20150203

REACTIONS (1)
  - Peripheral circulatory failure [Recovered/Resolved]

NARRATIVE: CASE EVENT DATE: 20150203
